FAERS Safety Report 11656691 (Version 5)
Quarter: 2016Q1

REPORT INFORMATION
  Report Type: Report from Study
  Country: US (occurrence: US)
  Receive Date: 20151023
  Receipt Date: 20160112
  Transmission Date: 20160525
  Serious: Yes (Death, Hospitalization, Other)
  Sender: FDA-Public Use
  Company Number: US-AMGEN-USASL2015109119

PATIENT
  Age: 41 Year
  Sex: Male

DRUGS (10)
  1. CLONIDINE. [Concomitant]
     Active Substance: CLONIDINE
  2. BLINCYTO [Suspect]
     Active Substance: BLINATUMOMAB
     Indication: LYMPHOMA
     Dosage: UNK
     Route: 065
     Dates: start: 20151012
  3. METOPROLOL. [Concomitant]
     Active Substance: METOPROLOL
  4. BACTRIM [Concomitant]
     Active Substance: SULFAMETHOXAZOLE\TRIMETHOPRIM
  5. FLUCONAZOLE. [Concomitant]
     Active Substance: FLUCONAZOLE
  6. PREDNISONE. [Concomitant]
     Active Substance: PREDNISONE
  7. BLINCYTO [Suspect]
     Active Substance: BLINATUMOMAB
     Indication: ACUTE LYMPHOCYTIC LEUKAEMIA RECURRENT
  8. LEVAQUIN [Concomitant]
     Active Substance: LEVOFLOXACIN
  9. PREVACID [Concomitant]
     Active Substance: LANSOPRAZOLE
  10. ACYCLOVIR                          /00587301/ [Concomitant]
     Active Substance: ACYCLOVIR

REACTIONS (11)
  - Renal failure [Fatal]
  - Cytokine release syndrome [Unknown]
  - Rash [Unknown]
  - Dyspnoea [Unknown]
  - Infusion related reaction [Unknown]
  - Pneumonia [Unknown]
  - Respiratory distress [Unknown]
  - Respiratory disorder [Not Recovered/Not Resolved]
  - Wheezing [Unknown]
  - Hyperpyrexia [Fatal]
  - Septic shock [Fatal]

NARRATIVE: CASE EVENT DATE: 201510
